FAERS Safety Report 12318278 (Version 2)
Quarter: 2016Q2

REPORT INFORMATION
  Report Type: Spontaneous
  Country: IL (occurrence: IL)
  Receive Date: 20160429
  Receipt Date: 20160513
  Transmission Date: 20160815
  Serious: Yes (Hospitalization, Other)
  Sender: FDA-Public Use
  Company Number: IL-PFIZER INC-2016232908

PATIENT
  Age: 18 Year
  Sex: Female
  Weight: 52 kg

DRUGS (2)
  1. CYTOTEC [Suspect]
     Active Substance: MISOPROSTOL
     Indication: ABORTION INDUCED
     Dosage: 400 UG, SINGLE
     Route: 048
     Dates: start: 20130801, end: 20130801
  2. MIFEGYNE [Suspect]
     Active Substance: MIFEPRISTONE
     Indication: ABORTION INDUCED
     Dosage: 600 MG, SINGLE
     Route: 048
     Dates: start: 20130730, end: 20130730

REACTIONS (3)
  - Post abortion infection [Recovered/Resolved]
  - Drug ineffective for unapproved indication [Unknown]
  - Metrorrhagia [Recovered/Resolved]

NARRATIVE: CASE EVENT DATE: 20130801
